FAERS Safety Report 17562138 (Version 1)
Quarter: 2020Q1

REPORT INFORMATION
  Report Type: Spontaneous
  Country: US (occurrence: US)
  Receive Date: 20200319
  Receipt Date: 20200319
  Transmission Date: 20200409
  Serious: No
  Sender: FDA-Public Use
  Company Number: US-009507513-2002USA008880

PATIENT
  Age: 40 Year
  Sex: Male

DRUGS (1)
  1. PRINIVIL [Suspect]
     Active Substance: LISINOPRIL
     Indication: LUPUS NEPHRITIS
     Dosage: UNK
     Route: 048

REACTIONS (2)
  - Rash [Unknown]
  - Off label use [Unknown]
